FAERS Safety Report 15886527 (Version 5)
Quarter: 2024Q3

REPORT INFORMATION
  Report Type: Spontaneous
  Country: US (occurrence: US)
  Receive Date: 20190129
  Receipt Date: 20240911
  Transmission Date: 20241017
  Serious: Yes (Other)
  Sender: PFIZER
  Company Number: US-PFIZER INC-2019042270

PATIENT
  Age: 37 Year
  Sex: Male

DRUGS (2)
  1. XYNTHA [Suspect]
     Active Substance: ANTIHEMOPHILIC FACTOR, HUMAN RECOMBINANT RESIDUES 743-1636 DELETED
     Indication: Haemorrhage
     Dosage: UNK
  2. XYNTHA [Suspect]
     Active Substance: ANTIHEMOPHILIC FACTOR, HUMAN RECOMBINANT RESIDUES 743-1636 DELETED
     Dosage: INFUSE 3000 UNITS (+/-10%) X 5 DOSES QD PRN/3000 IU DAILY PRN BLEEDING

REACTIONS (2)
  - Haemarthrosis [Unknown]
  - Joint injury [Unknown]
